FAERS Safety Report 20579050 (Version 1)
Quarter: 2022Q1

REPORT INFORMATION
  Report Type: Spontaneous
  Country: US (occurrence: None)
  Receive Date: 20220310
  Receipt Date: 20220310
  Transmission Date: 20220424
  Serious: Yes (Hospitalization)
  Sender: FDA-Public Use
  Company Number: 2022A097246

PATIENT
  Age: 31189 Day
  Sex: Male
  Weight: 76.2 kg

DRUGS (5)
  1. BUDESONIDE\FORMOTEROL\GLYCOPYRRONIUM [Suspect]
     Active Substance: BUDESONIDE\FORMOTEROL\GLYCOPYRRONIUM
     Indication: Chronic obstructive pulmonary disease
     Dosage: 160 MCG/9MCG/4.8MCG, 120 INHALATIONS, 2 INHALATIONS TWICE A DAY
     Route: 055
     Dates: start: 202201
  2. SYMBICORT [Concomitant]
     Active Substance: BUDESONIDE\FORMOTEROL FUMARATE DIHYDRATE
     Indication: Chronic obstructive pulmonary disease
     Route: 055
  3. OXYGEN [Concomitant]
     Active Substance: OXYGEN
  4. ALBUTEROL [Concomitant]
     Active Substance: ALBUTEROL
  5. DEVICE [Concomitant]
     Active Substance: DEVICE

REACTIONS (2)
  - Pneumonia [Unknown]
  - Intentional device misuse [Unknown]

NARRATIVE: CASE EVENT DATE: 20220219
